FAERS Safety Report 4846480-9 (Version None)
Quarter: 2005Q4

REPORT INFORMATION
  Report Type: 
  Country: None (occurrence: None)
  Receive Date: 20051206
  Receipt Date: 20050721
  Transmission Date: 20060501
  Serious: Yes (Hospitalization)
  Sender: FDA-Public Use
  Company Number: HQWYE410922JUL05

PATIENT
  Sex: Male

DRUGS (9)
  1. ENBREL [Suspect]
     Indication: RHEUMATOID ARTHRITIS
     Route: 058
     Dates: start: 20050422
  2. AZULFIDINE [Concomitant]
     Route: 048
     Dates: start: 20040906
  3. DOXAZOSIN MESYLATE [Concomitant]
     Route: 065
     Dates: start: 20040906
  4. ISOSORBIDE DINITRATE [Concomitant]
     Route: 065
     Dates: start: 20040906
  5. DISOPYRAMIDE [Concomitant]
     Route: 065
     Dates: start: 20040906
  6. PERSANTIN [Concomitant]
     Route: 065
     Dates: start: 20040906
  7. LANSOPRAZOLE [Concomitant]
     Route: 065
     Dates: start: 20040906
  8. CYTOTEC [Concomitant]
     Route: 065
     Dates: start: 20040906
  9. MOBIC [Concomitant]
     Route: 065
     Dates: start: 20040906

REACTIONS (3)
  - BACK PAIN [None]
  - CARDIAC FAILURE [None]
  - CONDITION AGGRAVATED [None]
